FAERS Safety Report 15659153 (Version 2)
Quarter: 2019Q1

REPORT INFORMATION
  Report Type: Report from Study
  Country: CO (occurrence: CO)
  Receive Date: 20181127
  Receipt Date: 20190320
  Transmission Date: 20190417
  Serious: Yes (Death, Hospitalization, Other)
  Sender: FDA-Public Use
  Company Number: CO-UCBSA-2018051439

PATIENT
  Age: 81 Year
  Sex: Female

DRUGS (1)
  1. ROTIGOTINE [Suspect]
     Active Substance: ROTIGOTINE
     Indication: PARKINSON^S DISEASE
     Dosage: 4 MG, ONCE DAILY (QD)
     Route: 062
     Dates: start: 20160411, end: 20190216

REACTIONS (4)
  - Thrombosis [Fatal]
  - Fall [Fatal]
  - Hip fracture [Fatal]
  - Femur fracture [Fatal]

NARRATIVE: CASE EVENT DATE: 20181111
